FAERS Safety Report 6835507-0 (Version None)
Quarter: 2010Q3

REPORT INFORMATION
  Report Type: 
  Country: None (occurrence: None)
  Receive Date: 20100713
  Receipt Date: 20100629
  Transmission Date: 20110219
  Serious: Yes (Other)
  Sender: FDA-Public Use
  Company Number: PHHY2010US10017

PATIENT
  Sex: Male
  Weight: 83.9 kg

DRUGS (22)
  1. EXELON [Suspect]
     Indication: DEMENTIA
     Dosage: 4.6 MG UNK
     Route: 062
  2. EXELON [Suspect]
     Dosage: 9.5 MG, QD
     Route: 062
     Dates: start: 20090901
  3. PLAVIX [Concomitant]
  4. ALLOPURINOL [Concomitant]
     Dosage: 300 MG UNK
  5. ZANTAC [Concomitant]
     Dosage: 75 MG, BID
  6. LIPITOR [Concomitant]
     Dosage: 10 MG UNK
  7. FISH OIL [Concomitant]
  8. VITAMINS [Concomitant]
  9. STOOL SOFTENER [Concomitant]
  10. CARBIDOPA + LEVODOPA [Concomitant]
     Dosage: 25MG/100MG TABLET 1/2 TABLET QD
  11. TEMAZEPAM [Concomitant]
     Indication: INSOMNIA
     Dosage: 1 CAPSULE
     Route: 048
  12. ALBUTEROL [Concomitant]
     Dosage: 90 UG/1 ACTUATION ORAL INHALER
  13. NASACORT AQ [Concomitant]
     Dosage: 50UG/1 ACTUATION NASAL SPRAY
  14. NAMENDA [Concomitant]
     Dosage: 1 TABLET, BID
     Route: 048
  15. ASPIRIN [Concomitant]
     Dosage: 1 TABLET, QAM
     Route: 048
  16. XYZAL [Concomitant]
     Dosage: 1/2 TO 1 TABLET EACH EVENING.
     Route: 048
  17. COMPAZINE [Concomitant]
     Dosage: 1 TABLET, 4 TO 6 PRN
     Route: 048
  18. QVAR 40 [Concomitant]
     Dosage: ORAL INHALER, 1 PUFF BID
  19. DOXYCYCLINE [Concomitant]
     Dosage: 1 CAPSULE
     Route: 048
  20. LORAZEPAM [Concomitant]
     Dosage: 1 TABLET, BID PRN
     Route: 048
  21. DIFLUCAN [Concomitant]
     Dosage: 1 TABLET QD X 3 DAYS
     Route: 048
  22. VERAMYST [Concomitant]
     Dosage: 27.5 UG/1 SPRAY NASAL SPRAY.

REACTIONS (5)
  - ANGINA UNSTABLE [None]
  - APPLICATION SITE PARAESTHESIA [None]
  - HEAT RASH [None]
  - PRURITUS [None]
  - SCAB [None]
